FAERS Safety Report 6546461-3 (Version None)
Quarter: 2010Q1

REPORT INFORMATION
  Report Type: 
  Country: None (occurrence: None)
  Receive Date: 20100122
  Receipt Date: 20100118
  Transmission Date: 20100710
  Serious: Yes (Death)
  Sender: FDA-Public Use
  Company Number: PHHY2010FR02439

PATIENT
  Sex: Male

DRUGS (11)
  1. COMTAN [Suspect]
     Dosage: 1000 MG DAILY
  2. ENANTONE - SLOW RELEASE [Suspect]
     Dosage: 30 MG, Q3MO
     Dates: start: 20090207
  3. NOVONORM [Suspect]
     Dosage: 1 MG, BID
  4. MODOPAR [Suspect]
     Dosage: 625 MG DAILY
  5. COZAAR [Suspect]
     Dosage: 50 MG, QD
  6. METFORMIN HCL [Suspect]
     Dosage: 1000 MG, BID
  7. TAHOR [Suspect]
     Dosage: 10 MG, QD
  8. EQUANIL [Suspect]
     Dosage: 250 MG, BID
  9. ATHYMIL [Suspect]
     Dosage: 30 MG, QD
  10. LEXOMIL [Suspect]
     Dosage: 0.25 DF, BID
  11. FORLAX [Suspect]
     Dosage: 2 DF, QD

REACTIONS (1)
  - DEATH [None]
